FAERS Safety Report 7996980-8 (Version None)
Quarter: 2011Q4

REPORT INFORMATION
  Report Type: 
  Country: None (occurrence: None)
  Receive Date: 20111216
  Receipt Date: 20111206
  Transmission Date: 20120403
  Serious: Yes (Other)
  Sender: FDA-Public Use
  Company Number: 1000026189

PATIENT
  Age: 74 Year
  Sex: Male

DRUGS (2)
  1. MEMANTINE HYDROCHLORIDE [Suspect]
     Indication: DEMENTIA ALZHEIMER'S TYPE
     Dosage: ORAL
     Route: 048
     Dates: start: 20110206, end: 20111108
  2. VALPROIC ACID [Suspect]
     Indication: DEMENTIA ALZHEIMER'S TYPE
     Dates: start: 20110106, end: 20111108

REACTIONS (1)
  - EPIDERMOLYSIS BULLOSA [None]
